FAERS Safety Report 8370620-0 (Version None)
Quarter: 2012Q2

REPORT INFORMATION
  Report Type: 
  Country: None (occurrence: None)
  Receive Date: 20120518
  Receipt Date: 20120508
  Transmission Date: 20120825
  Serious: Yes (Hospitalization)
  Sender: FDA-Public Use
  Company Number: ZA-ELI_LILLY_AND_COMPANY-ZA201205005672

PATIENT
  Age: 39 Year
  Sex: Female

DRUGS (3)
  1. HUMALOG MIX 75/25 [Suspect]
     Dosage: 24 U, EACH EVENING
     Dates: start: 20111101
  2. HUMALOG [Suspect]
  3. HUMALOG MIX 75/25 [Suspect]
     Indication: HYPERGLYCAEMIA
     Dosage: 40 U, EACH MORNING
     Dates: start: 20111101

REACTIONS (2)
  - DRUG DISPENSING ERROR [None]
  - DIABETES MELLITUS INADEQUATE CONTROL [None]
